FAERS Safety Report 18930281 (Version 1)
Quarter: 2021Q1

REPORT INFORMATION
  Report Type: Spontaneous
  Country: FR (occurrence: FR)
  Receive Date: 20210223
  Receipt Date: 20210223
  Transmission Date: 20210420
  Serious: Yes (Life-Threatening)
  Sender: FDA-Public Use
  Company Number: FR-TEVA-2021-FR-1881581

PATIENT
  Age: 77 Year
  Sex: Male
  Weight: 88 kg

DRUGS (4)
  1. NEBIVOLOL. [Suspect]
     Active Substance: NEBIVOLOL
     Dosage: 75 MG
     Route: 048
     Dates: start: 20210121, end: 20210121
  2. LOXEN L P 50 MG, GELULE A LIBERATION PROLONGEE [Suspect]
     Active Substance: NICARDIPINE HYDROCHLORIDE
     Indication: TOXICITY TO VARIOUS AGENTS
     Dosage: 750 MG
     Route: 048
     Dates: start: 20210121, end: 20210121
  3. DIPIPERON (PIPAMPERONE HYDROCHLORIDE) [Suspect]
     Active Substance: PIPAMPERONE HYDROCHLORIDE
     Indication: TOXICITY TO VARIOUS AGENTS
     Dosage: 225 GTT
     Route: 048
     Dates: start: 20210121, end: 20210121
  4. ANAFRANIL [Suspect]
     Active Substance: CLOMIPRAMINE HYDROCHLORIDE
     Indication: TOXICITY TO VARIOUS AGENTS
     Dosage: 750 MG
     Route: 048
     Dates: start: 20210121, end: 20210121

REACTIONS (1)
  - Shock [Recovered/Resolved]

NARRATIVE: CASE EVENT DATE: 20210121
